FAERS Safety Report 6760780-7 (Version None)
Quarter: 2010Q2

REPORT INFORMATION
  Report Type: 
  Country: None (occurrence: None)
  Receive Date: 20100608
  Receipt Date: 20100527
  Transmission Date: 20101027
  Serious: Yes (Other)
  Sender: FDA-Public Use
  Company Number: US-JNJFOC-20100510743

PATIENT
  Age: 18 Month
  Sex: Male
  Weight: 13.61 kg

DRUGS (5)
  1. CHILDREN'S MOTRIN [Suspect]
     Indication: TEETHING
     Dosage: AS NEEDED
     Route: 048
  2. CHILDREN'S MOTRIN [Suspect]
     Indication: ABDOMINAL PAIN UPPER
     Dosage: AS NEEDED
     Route: 048
  3. CHILDREN'S TYLENOL SUSPENSION [Suspect]
     Indication: ABDOMINAL PAIN UPPER
     Dosage: AS NEEDED
     Route: 048
  4. CHILDREN'S TYLENOL SUSPENSION [Suspect]
     Indication: TEETHING
     Dosage: AS NEEDED
     Route: 048
  5. PEDIALYTE [Concomitant]

REACTIONS (8)
  - ABDOMINAL PAIN UPPER [None]
  - ABNORMAL FAECES [None]
  - DIARRHOEA [None]
  - INAPPROPRIATE SCHEDULE OF DRUG ADMINISTRATION [None]
  - PRODUCT QUALITY ISSUE [None]
  - PYREXIA [None]
  - VOMITING [None]
  - WEIGHT DECREASED [None]
